FAERS Safety Report 6448760-2 (Version None)
Quarter: 2009Q4

REPORT INFORMATION
  Report Type: 
  Country: None (occurrence: None)
  Receive Date: 20091120
  Receipt Date: 20090811
  Transmission Date: 20100525
  Serious: No
  Sender: FDA-Public Use
  Company Number: US-KINGPHARMUSA00001-K200900973

PATIENT
  Sex: Female
  Weight: 90.703 kg

DRUGS (4)
  1. FLECTOR [Suspect]
     Indication: TENDONITIS
     Dosage: 1 PATCH, QD
     Route: 061
     Dates: start: 20090807, end: 20090811
  2. INSULIN [Concomitant]
     Indication: DIABETES MELLITUS
     Dosage: 15 U, BID
     Route: 058
  3. GLYBURIDE [Concomitant]
     Indication: DIABETES MELLITUS
     Dosage: 1 DF, BID
  4. GLUCOPHAGE [Concomitant]
     Indication: DIABETES MELLITUS
     Dosage: 1 DF, BID

REACTIONS (1)
  - BLOOD GLUCOSE INCREASED [None]
